FAERS Safety Report 15830871 (Version 1)
Quarter: 2019Q1

REPORT INFORMATION
  Report Type: Spontaneous
  Country: US (occurrence: US)
  Receive Date: 20190114
  Receipt Date: 20190114
  Transmission Date: 20190417
  Serious: No
  Sender: FDA-Public Use
  Company Number: None

PATIENT
  Age: 81 Year
  Sex: Male
  Weight: 62 kg

DRUGS (1)
  1. ACETAMINOPHEN/OXYCODONE [Suspect]
     Active Substance: ACETAMINOPHEN\OXYCODONE HYDROCHLORIDE
     Dosage: 10MG/650MG PRN PO
     Route: 048
     Dates: start: 20181231, end: 20190101

REACTIONS (3)
  - Hypotension [None]
  - Unresponsive to stimuli [None]
  - Lethargy [None]

NARRATIVE: CASE EVENT DATE: 20190101
